FAERS Safety Report 25975801 (Version 1)
Quarter: 2025Q4

REPORT INFORMATION
  Report Type: Spontaneous
  Country: EU (occurrence: EU)
  Receive Date: 20251029
  Receipt Date: 20251029
  Transmission Date: 20260118
  Serious: Yes (Other)
  Sender: MYLAN
  Company Number: None

PATIENT
  Age: 16 Year
  Sex: Male
  Weight: 68.5 kg

DRUGS (4)
  1. VANCOMYCIN [Suspect]
     Active Substance: VANCOMYCIN
     Indication: Bacillus bacteraemia
     Dosage: 2776 MILLIGRAM, QD
     Dates: start: 20240728, end: 20240801
  2. VANCOMYCIN [Suspect]
     Active Substance: VANCOMYCIN
     Dosage: 2776 MILLIGRAM, QD
     Route: 042
     Dates: start: 20240728, end: 20240801
  3. VANCOMYCIN [Suspect]
     Active Substance: VANCOMYCIN
     Dosage: 2776 MILLIGRAM, QD
     Route: 042
     Dates: start: 20240728, end: 20240801
  4. VANCOMYCIN [Suspect]
     Active Substance: VANCOMYCIN
     Dosage: 2776 MILLIGRAM, QD
     Dates: start: 20240728, end: 20240801

REACTIONS (2)
  - Acute kidney injury [Recovered/Resolved]
  - Antibiotic level above therapeutic [Recovered/Resolved]

NARRATIVE: CASE EVENT DATE: 20240801
